FAERS Safety Report 4900078-2 (Version None)
Quarter: 2006Q1

REPORT INFORMATION
  Report Type: 
  Country: None (occurrence: None)
  Receive Date: 20060201
  Receipt Date: 20060113
  Transmission Date: 20060701
  Serious: Yes (Other)
  Sender: FDA-Public Use
  Company Number: USA0506100587

PATIENT
  Age: 65 Year
  Sex: Female
  Weight: 69.8 kg

DRUGS (8)
  1. FORTEO [Suspect]
     Indication: OSTEOPOROSIS
     Dosage: 20 UG
     Dates: start: 20050413
  2. FORTEO PEN                       (FORTEO PEN) [Concomitant]
  3. CALCIUM GLUCONATE [Concomitant]
  4. MULTIVITAMINS, PLAIN [Concomitant]
  5. LIPITOR [Concomitant]
  6. ELAVIL [Concomitant]
  7. XANAX [Concomitant]
  8. PERCOCET [Concomitant]

REACTIONS (13)
  - ABDOMINAL PAIN UPPER [None]
  - BASAL CELL CARCINOMA [None]
  - COLONIC POLYP [None]
  - DIVERTICULITIS [None]
  - DRUG INEFFECTIVE [None]
  - FATIGUE [None]
  - INJECTION SITE ERYTHEMA [None]
  - LYMPHADENOPATHY [None]
  - NAUSEA [None]
  - PAIN [None]
  - PANCREATIC CYST [None]
  - PANCREATIC DUCT DILATATION [None]
  - VOMITING [None]
